FAERS Safety Report 7399454-0 (Version None)
Quarter: 2011Q1

REPORT INFORMATION
  Report Type: 
  Country: None (occurrence: None)
  Receive Date: 20110328
  Receipt Date: 20110318
  Transmission Date: 20110831
  Serious: Yes (Other)
  Sender: FDA-Public Use
  Company Number: 2011SP012367

PATIENT
  Age: 45 Year
  Sex: Female

DRUGS (8)
  1. TRABECTEDIN [Suspect]
     Indication: LIPOSARCOMA
     Dosage: IV; 2.45 MG;IV; 2.45 MG; IV
     Route: 042
     Dates: start: 20100510
  2. TRABECTEDIN [Suspect]
     Indication: CHEMOTHERAPY
     Dosage: IV; 2.45 MG;IV; 2.45 MG; IV
     Route: 042
     Dates: start: 20100510
  3. TRABECTEDIN [Suspect]
     Indication: LIPOSARCOMA
     Dosage: IV; 2.45 MG;IV; 2.45 MG; IV
     Route: 042
     Dates: start: 20100823
  4. TRABECTEDIN [Suspect]
     Indication: CHEMOTHERAPY
     Dosage: IV; 2.45 MG;IV; 2.45 MG; IV
     Route: 042
     Dates: start: 20100823
  5. TRABECTEDIN [Suspect]
     Indication: LIPOSARCOMA
     Dosage: IV; 2.45 MG;IV; 2.45 MG; IV
     Route: 042
     Dates: start: 20101004
  6. TRABECTEDIN [Suspect]
     Indication: CHEMOTHERAPY
     Dosage: IV; 2.45 MG;IV; 2.45 MG; IV
     Route: 042
     Dates: start: 20101004
  7. DEXAMETHASONE [Suspect]
     Indication: PREMEDICATION
     Dosage: 20 MG
     Dates: start: 20100823
  8. CITALOPRAM HYDROBROMIDE [Concomitant]

REACTIONS (3)
  - NEUTROPENIA [None]
  - BLOOD CREATINE PHOSPHOKINASE INCREASED [None]
  - MUSCLE SPASMS [None]
